FAERS Safety Report 20817679 (Version 1)
Quarter: 2022Q2

REPORT INFORMATION
  Report Type: Spontaneous
  Country: US (occurrence: US)
  Receive Date: 20220512
  Receipt Date: 20220512
  Transmission Date: 20220721
  Serious: No
  Sender: FDA-Public Use
  Company Number: US-KYOWAKIRIN-2022BKK006502

PATIENT

DRUGS (3)
  1. SANCUSO [Suspect]
     Active Substance: GRANISETRON
     Indication: Nausea
     Dosage: 34.3 MG, 1X/WEEK
     Route: 062
     Dates: start: 20220426
  2. SANCUSO [Suspect]
     Active Substance: GRANISETRON
     Indication: COVID-19
  3. SANCUSO [Suspect]
     Active Substance: GRANISETRON
     Indication: Vomiting

REACTIONS (3)
  - Drug ineffective for unapproved indication [Unknown]
  - Product use in unapproved indication [Unknown]
  - Product adhesion issue [Unknown]
